FAERS Safety Report 22202258 (Version 3)
Quarter: 2024Q1

REPORT INFORMATION
  Report Type: Report from Study
  Country: CA (occurrence: CA)
  Receive Date: 20230412
  Receipt Date: 20240301
  Transmission Date: 20240410
  Serious: Yes (Other)
  Sender: FDA-Public Use
  Company Number: CA-BAYER-2022A133430

PATIENT
  Sex: Male

DRUGS (10)
  1. BETASERON [Suspect]
     Active Substance: INTERFERON BETA-1B
     Indication: Multiple sclerosis
     Dosage: 8 MIU, QOD
     Dates: start: 19990401
  2. DEVICE [Suspect]
     Active Substance: DEVICE
     Dosage: UNK
  3. CELEBREX [Concomitant]
     Active Substance: CELECOXIB
  4. AMANTADINE [Concomitant]
     Active Substance: AMANTADINE
  5. BACLOFEN [Concomitant]
     Active Substance: BACLOFEN
  6. GLEEVEC [Concomitant]
     Active Substance: IMATINIB MESYLATE
  7. SPRYCEL [Concomitant]
     Active Substance: DASATINIB
  8. VITAMINS NOS [Concomitant]
     Active Substance: VITAMINS
     Dosage: UNK
  9. FUSIDIC ACID [Concomitant]
     Active Substance: FUSIDIC ACID
  10. TAMSULOSIN [Concomitant]
     Active Substance: TAMSULOSIN

REACTIONS (7)
  - Injection site necrosis [Not Recovered/Not Resolved]
  - Skin necrosis [Not Recovered/Not Resolved]
  - Injection site haemorrhage [Not Recovered/Not Resolved]
  - Injection site erythema [Not Recovered/Not Resolved]
  - Therapeutic product ineffective [Not Recovered/Not Resolved]
  - Injection site infection [Not Recovered/Not Resolved]
  - Prostatomegaly [Not Recovered/Not Resolved]
